FAERS Safety Report 6847304-0 (Version None)
Quarter: 2010Q3

REPORT INFORMATION
  Report Type: 
  Country: None (occurrence: None)
  Receive Date: 20100716
  Receipt Date: 20100712
  Transmission Date: 20110219
  Serious: Yes (Death)
  Sender: FDA-Public Use
  Company Number: JP-JNJFOC-20100601468

PATIENT
  Sex: Male

DRUGS (20)
  1. DUROTEP MT [Suspect]
     Indication: SCIATICA
     Dosage: 3 PATCHES OF 12.5 MCG/HR, EVERY 3 DAYS
     Route: 062
  2. DUROTEP MT [Suspect]
     Indication: INTERVERTEBRAL DISC PROTRUSION
     Dosage: 3 PATCHES OF 12.5 MCG/HR, EVERY 3 DAYS
     Route: 062
  3. DUROTEP MT [Suspect]
     Indication: OSTEOARTHRITIS
     Dosage: 3 PATCHES OF 12.5 MCG/HR, EVERY 3 DAYS
     Route: 062
  4. DUROTEP MT [Suspect]
     Indication: BACK PAIN
     Dosage: 3 PATCHES OF 12.5 MCG/HR, EVERY 3 DAYS
     Route: 062
  5. BUPRENORPHINE HYDROCHLORIDE [Suspect]
     Indication: PRODUCT USED FOR UNKNOWN INDICATION
     Route: 065
  6. LOXONIN [Concomitant]
     Indication: INTERVERTEBRAL DISC PROTRUSION
     Route: 048
  7. LOXONIN [Concomitant]
     Indication: SCIATICA
     Route: 048
  8. LOXONIN [Concomitant]
     Indication: OSTEOARTHRITIS
     Route: 048
  9. LOXONIN [Concomitant]
     Indication: BACK PAIN
     Route: 048
  10. PENTAZOCINE LACTATE [Concomitant]
     Indication: INTERVERTEBRAL DISC PROTRUSION
     Route: 065
  11. PENTAZOCINE LACTATE [Concomitant]
     Indication: SCIATICA
     Route: 065
  12. PENTAZOCINE LACTATE [Concomitant]
     Indication: OSTEOARTHRITIS
     Route: 065
  13. PENTAZOCINE LACTATE [Concomitant]
     Indication: BACK PAIN
     Route: 065
  14. CODEINE [Concomitant]
     Indication: SCIATICA
     Route: 048
  15. CODEINE [Concomitant]
     Indication: INTERVERTEBRAL DISC PROTRUSION
     Route: 048
  16. CODEINE [Concomitant]
     Indication: OSTEOARTHRITIS
     Route: 048
  17. CODEINE [Concomitant]
     Indication: BACK PAIN
     Route: 048
  18. DIAZEPAM [Concomitant]
     Indication: PRODUCT USED FOR UNKNOWN INDICATION
     Route: 065
  19. ALOSENN [Concomitant]
     Route: 048
  20. RETICOLAN [Concomitant]
     Route: 048

REACTIONS (2)
  - MYOCARDIAL INFARCTION [None]
  - MYOCARDIAL ISCHAEMIA [None]
